FAERS Safety Report 23461743 (Version 4)
Quarter: 2024Q1

REPORT INFORMATION
  Report Type: Spontaneous
  Country: US (occurrence: US)
  Receive Date: 20240131
  Receipt Date: 20240326
  Transmission Date: 20240410
  Serious: Yes (Other)
  Sender: FDA-Public Use
  Company Number: US-REGENERON PHARMACEUTICALS, INC.-2024-018206

PATIENT
  Sex: Female

DRUGS (2)
  1. EYLEA [Suspect]
     Active Substance: AFLIBERCEPT
     Indication: Retinal vein occlusion
     Dosage: 2MG, BETWEEN 6 AND 10 WEEKS, INTO RIGHT EYE, FORMULATION: UNKNOWN
     Route: 031
     Dates: start: 2021, end: 2023
  2. EYLEA [Suspect]
     Active Substance: AFLIBERCEPT
     Indication: Macular oedema

REACTIONS (6)
  - Macular oedema [Unknown]
  - Condition aggravated [Unknown]
  - Angiopathy [Recovering/Resolving]
  - Visual acuity reduced [Unknown]
  - Adverse drug reaction [Unknown]
  - Therapeutic product effect decreased [Unknown]

NARRATIVE: CASE EVENT DATE: 20230101
